FAERS Safety Report 24444463 (Version 2)
Quarter: 2024Q4

REPORT INFORMATION
  Report Type: Report from Study
  Country: US (occurrence: US)
  Receive Date: 20241016
  Receipt Date: 20241017
  Transmission Date: 20250114
  Serious: No
  Sender: ROCHE
  Company Number: US-ROCHE-2808628

PATIENT
  Age: 21 Year
  Sex: Male
  Weight: 85.59 kg

DRUGS (10)
  1. RITUXAN [Suspect]
     Active Substance: RITUXIMAB
     Indication: Acute kidney injury
     Route: 041
  2. RITUXAN [Suspect]
     Active Substance: RITUXIMAB
     Indication: Proteinuria
  3. RITUXAN [Suspect]
     Active Substance: RITUXIMAB
     Indication: Renal tubular necrosis
  4. RITUXAN [Suspect]
     Active Substance: RITUXIMAB
     Indication: Nephropathy toxic
  5. RITUXAN [Suspect]
     Active Substance: RITUXIMAB
     Indication: Chronic kidney disease
  6. RITUXAN [Suspect]
     Active Substance: RITUXIMAB
     Indication: Nephritic syndrome
  7. RITUXAN [Suspect]
     Active Substance: RITUXIMAB
     Indication: Glomerulonephritis rapidly progressive
  8. RITUXAN [Suspect]
     Active Substance: RITUXIMAB
     Indication: Iron deficiency anaemia
  9. ACETAMINOPHEN [Concomitant]
     Active Substance: ACETAMINOPHEN
     Route: 048
  10. BENADRYL [Concomitant]
     Active Substance: DIPHENHYDRAMINE HYDROCHLORIDE
     Route: 042

REACTIONS (2)
  - Off label use [Unknown]
  - No adverse event [Unknown]
